FAERS Safety Report 6132931-9 (Version None)
Quarter: 2009Q1

REPORT INFORMATION
  Report Type: 
  Country: None (occurrence: None)
  Receive Date: 20090326
  Receipt Date: 20090218
  Transmission Date: 20090719
  Serious: No
  Sender: FDA-Public Use
  Company Number: US-BAYER-200913798NA

PATIENT
  Age: 35 Year
  Sex: Female
  Weight: 61 kg

DRUGS (3)
  1. DROSPIRENONE AND ETHINYL ESTRADIOL [Suspect]
     Indication: ENDOMETRIOSIS
     Route: 048
     Dates: start: 20080101
  2. CYMBALTA [Concomitant]
     Indication: DEPRESSION
  3. ETODOLAC [Concomitant]
     Indication: ANALGESIC INTERVENTION SUPPORTIVE THERAPY

REACTIONS (2)
  - ABDOMINAL PAIN [None]
  - NO ADVERSE EVENT [None]
